FAERS Safety Report 6106446-8 (Version None)
Quarter: 2009Q1

REPORT INFORMATION
  Report Type: 
  Country: None (occurrence: None)
  Receive Date: 20090306
  Receipt Date: 20090223
  Transmission Date: 20090719
  Serious: Yes (Death, Hospitalization)
  Sender: FDA-Public Use
  Company Number: JP-WATSON-2009-01325

PATIENT
  Age: 39 Year
  Sex: Male

DRUGS (1)
  1. DIPHENHYDRAMINE HCL [Suspect]
     Indication: INTENTIONAL OVERDOSE
     Dosage: UNK
     Route: 048
     Dates: start: 20080101

REACTIONS (10)
  - CAPILLARY PERMEABILITY INCREASED [None]
  - CARDIOGENIC SHOCK [None]
  - CIRCULATORY COLLAPSE [None]
  - COMA [None]
  - DEHYDRATION [None]
  - DRUG TOXICITY [None]
  - METABOLIC ACIDOSIS [None]
  - PULMONARY CONGESTION [None]
  - RHABDOMYOLYSIS [None]
  - STATUS EPILEPTICUS [None]
